FAERS Safety Report 20605701 (Version 1)
Quarter: 2022Q1

REPORT INFORMATION
  Report Type: Report from Study
  Country: IT (occurrence: IT)
  Receive Date: 20220317
  Receipt Date: 20220317
  Transmission Date: 20220424
  Serious: Yes (Other)
  Sender: FDA-Public Use
  Company Number: None

PATIENT
  Age: 31 Year
  Sex: Female

DRUGS (4)
  1. LEVETIRACETAM [Suspect]
     Active Substance: LEVETIRACETAM
     Indication: Epilepsy
     Dosage: UNIT DOSE 1500MG
     Route: 048
     Dates: start: 20210416
  2. SPIKEVAX [Suspect]
     Active Substance: ELASOMERAN
     Indication: COVID-19 immunisation
     Dosage: SPIKEVAX (FORMER COVID-19 MODERN VACCINE), UNIT DOSE 0.5MG
     Route: 030
     Dates: start: 20220131, end: 20220131
  3. RIVOTRIL [Concomitant]
     Active Substance: CLONAZEPAM
     Dosage: UNIT DOSE 5GTT
  4. OCREVUS [Concomitant]
     Active Substance: OCRELIZUMAB
     Indication: Multiple sclerosis
     Dosage: UNIT DOSE 1 DOSAGE FORM
     Route: 042
     Dates: start: 20191203

REACTIONS (4)
  - Vomiting [Not Recovered/Not Resolved]
  - Syncope [Not Recovered/Not Resolved]
  - Epilepsy [Not Recovered/Not Resolved]
  - Confusional state [Not Recovered/Not Resolved]

NARRATIVE: CASE EVENT DATE: 20220131
